FAERS Safety Report 4693100-2 (Version None)
Quarter: 2005Q2

REPORT INFORMATION
  Report Type: 
  Country: None (occurrence: None)
  Receive Date: 20050128
  Receipt Date: 20050128
  Transmission Date: 20051028
  Serious: Yes (Other)
  Sender: FDA-Public Use
  Company Number: None

PATIENT
  Age: 64 Year
  Sex: Female
  Weight: 69.4003 kg

DRUGS (1)
  1. GABAPENTIN [Suspect]

REACTIONS (4)
  - DYSPNOEA [None]
  - PHARMACEUTICAL PRODUCT COMPLAINT [None]
  - PHARYNGEAL OEDEMA [None]
  - REACTION TO MEDICAL AGENT PRESERVATIVES [None]
